FAERS Safety Report 6333338-1 (Version None)
Quarter: 2009Q3

REPORT INFORMATION
  Report Type: 
  Country: None (occurrence: None)
  Receive Date: 20090828
  Receipt Date: 20090306
  Transmission Date: 20100115
  Serious: No
  Sender: FDA-Public Use
  Company Number: A0751582A

PATIENT
  Age: 54 Year
  Sex: Male

DRUGS (8)
  1. BECONASE [Suspect]
     Indication: EPISTAXIS
     Dosage: 2SPR TWICE PER DAY
     Route: 045
     Dates: start: 19830101
  2. OXYCONTIN [Concomitant]
  3. MORPHINE [Concomitant]
  4. VALIUM [Concomitant]
  5. LEVOTHYROXINE [Concomitant]
  6. SINGULAIR [Concomitant]
  7. CLARINEX [Concomitant]
  8. FLOVENT [Concomitant]

REACTIONS (7)
  - DIPLOPIA [None]
  - EYE MOVEMENT DISORDER [None]
  - OEDEMA PERIPHERAL [None]
  - PRODUCT QUALITY ISSUE [None]
  - THERAPEUTIC RESPONSE UNEXPECTED [None]
  - VISION BLURRED [None]
  - VISUAL IMPAIRMENT [None]
